FAERS Safety Report 9103796 (Version 1)
Quarter: 2013Q1

REPORT INFORMATION
  Report Type: Spontaneous
  Country: CA (occurrence: None)
  Receive Date: 20130125
  Receipt Date: 20130125
  Transmission Date: 20140127
  Serious: Yes (Hospitalization, Other)
  Sender: FDA-Public Use
  Company Number: DAV-AE-PYR-13-01

PATIENT
  Age: 5 Month
  Sex: Male

DRUGS (1)
  1. PYRAZINAMIDE [Suspect]
     Indication: TUBERCULOSIS

REACTIONS (6)
  - Paradoxical drug reaction [None]
  - General physical health deterioration [None]
  - Pyrexia [None]
  - Stridor [None]
  - Tracheal stenosis [None]
  - Hilar lymphadenopathy [None]
